APPROVED DRUG PRODUCT: VALPROATE SODIUM
Active Ingredient: VALPROATE SODIUM
Strength: EQ 100MG BASE/ML
Dosage Form/Route: INJECTABLE;INJECTION
Application: A076295 | Product #001 | TE Code: AP
Applicant: SAGENT PHARMACEUTICALS
Approved: Nov 14, 2002 | RLD: No | RS: No | Type: RX